FAERS Safety Report 6122215-7 (Version None)
Quarter: 2009Q1

REPORT INFORMATION
  Report Type: 
  Country: None (occurrence: None)
  Receive Date: 20090316
  Receipt Date: 20090311
  Transmission Date: 20090719
  Serious: Yes (Life-Threatening, Hospitalization)
  Sender: FDA-Public Use
  Company Number: GXKR2009DE03017

PATIENT
  Age: 77 Year
  Sex: Female
  Weight: 95 kg

DRUGS (9)
  1. GLIBENCLAMIDE (NGX) (GLIBENCLAMIDE) TABLET, 1.75MG [Suspect]
     Indication: TYPE 2 DIABETES MELLITUS
     Dosage: 1.75 MG, QD, ORAL
     Route: 048
     Dates: start: 20000101, end: 20080727
  2. FUROSEMIDE [Suspect]
     Indication: RENAL IMPAIRMENT
     Dosage: 60 MG, QD, ORAL
     Route: 048
     Dates: start: 20020101, end: 20080808
  3. LISINOPRIL [Suspect]
     Indication: HYPERTENSION
     Dosage: 10 MG, QD, ORAL
     Route: 048
     Dates: start: 20030101, end: 20080727
  4. METFORMIN (NGX) (METFORMIN) TABLET, 500MG [Suspect]
     Indication: TYPE 2 DIABETES MELLITUS
     Dosage: 500 MG, BID, ORAL
     Route: 048
     Dates: start: 19950101
  5. METOPROLOL SUCCINATE [Suspect]
     Indication: HYPERTENSION
     Dosage: 100 MG, BID, ORAL
     Route: 048
     Dates: start: 19990101
  6. ASPIRIN [Concomitant]
  7. PANTOPRAZOLE SODIUM [Concomitant]
  8. SIMVASTATIN [Concomitant]
  9. XIPAMIDE (XIPAMIDE) [Concomitant]

REACTIONS (2)
  - HYPOGLYCAEMIA [None]
  - RENAL FAILURE ACUTE [None]
